FAERS Safety Report 22142893 (Version 4)
Quarter: 2023Q2

REPORT INFORMATION
  Report Type: Report from Study
  Country: EG (occurrence: EG)
  Receive Date: 20230327
  Receipt Date: 20230411
  Transmission Date: 20230722
  Serious: Yes (Other)
  Sender: FDA-Public Use
  Company Number: EG-002147023-NVSC2023EG066719

PATIENT
  Sex: Female

DRUGS (18)
  1. ENTRESTO [Suspect]
     Active Substance: SACUBITRIL\VALSARTAN
     Indication: Cardiac failure
     Dosage: 200 MG, BID (1 TABLET: FROM MORE THAN 1 YEAR)
     Route: 048
     Dates: start: 2019
  2. ENTRESTO [Suspect]
     Active Substance: SACUBITRIL\VALSARTAN
     Dosage: 100 MG, BID (1 TABLET: FROM ABOUT ONE MONTH AND HALF OR 2 MONTHS)
     Route: 048
  3. ENTRESTO [Suspect]
     Active Substance: SACUBITRIL\VALSARTAN
     Dosage: 200 MG, QD
     Route: 048
  4. ENTRESTO [Suspect]
     Active Substance: SACUBITRIL\VALSARTAN
     Dosage: 50 MG, BID (ONE TABLET)
     Route: 048
  5. ENTRESTO [Suspect]
     Active Substance: SACUBITRIL\VALSARTAN
     Dosage: 200 ONE TABLET ONCE
     Route: 048
  6. ENTRESTO [Suspect]
     Active Substance: SACUBITRIL\VALSARTAN
     Dosage: 200 MG, BID (ONE TABLET)
     Route: 048
  7. ENTRESTO [Suspect]
     Active Substance: SACUBITRIL\VALSARTAN
     Dosage: 0.5 DOSAGE FORM, BID (200 MG)
     Route: 048
  8. ENTRESTO [Suspect]
     Active Substance: SACUBITRIL\VALSARTAN
     Dosage: 100 MG, BID (ONE TABLET)
     Route: 048
     Dates: start: 202212
  9. ENTRESTO [Suspect]
     Active Substance: SACUBITRIL\VALSARTAN
     Dosage: 0.5 DOSAGE FORM, QD (200 MG)
     Route: 048
  10. TORSEMIDE [Concomitant]
     Active Substance: TORSEMIDE
     Indication: Polyuria
     Dosage: 1 DOSAGE FORM (FROM 4 OR 5 YEARS)
     Route: 048
  11. ALDOMET [Concomitant]
     Active Substance: METHYLDOPA
     Indication: Hypertension
     Dosage: 1 DOSAGE FORM BID  (FROM  5 YEARS, STARTED IN 2019 OR 2020)
     Route: 048
  12. ALDOMET [Concomitant]
     Active Substance: METHYLDOPA
     Dosage: 1 DOSAGE FORM, QD
     Route: 065
     Dates: start: 202303
  13. PANTOPRAZOLE SODIUM [Concomitant]
     Active Substance: PANTOPRAZOLE SODIUM
     Indication: Abdominal discomfort
     Dosage: 1 DOSAGE FORM, QD (ABOUT 1 YEAR AND MORE)
     Route: 048
  14. BRADIPECT [Concomitant]
     Indication: Heart rate increased
     Dosage: 1 DOSAGE FORM (5 MG, TWICE, FROM ABOUT 3 OR 4 MONTHS)
     Route: 048
     Dates: start: 202211
  15. BRADIPECT [Concomitant]
     Dosage: 7.5 MG
     Route: 048
  16. ASPIRIN [Concomitant]
     Active Substance: ASPIRIN
     Indication: Prophylaxis
     Dosage: 1 DOSAGE FORM, QD
     Route: 048
     Dates: start: 2019
  17. BISOPROLOL FUMARATE [Concomitant]
     Active Substance: BISOPROLOL FUMARATE
     Indication: Hypertension
     Dosage: 1 DOSAGE FORM, QD (AT MORNING)
     Route: 048
     Dates: start: 2019, end: 2020
  18. CARDURA [Concomitant]
     Active Substance: DOXAZOSIN MESYLATE
     Indication: Hypertension
     Dosage: 1 DOSAGE FORM, QD (AT NIGHT)
     Route: 048
     Dates: start: 2019

REACTIONS (6)
  - Dyspnoea [Recovered/Resolved]
  - Speech disorder [Not Recovered/Not Resolved]
  - Heart rate increased [Recovered/Resolved]
  - Hypotension [Recovering/Resolving]
  - Wrong technique in product usage process [Unknown]
  - Off label use [Unknown]
